FAERS Safety Report 10404472 (Version 1)
Quarter: 2014Q1

REPORT INFORMATION
  Report Type: Spontaneous
  Country: US (occurrence: None)
  Receive Date: 20140306
  Receipt Date: 20140306
  Transmission Date: 20141002
  Serious: Yes (Hospitalization, Other)
  Sender: FDA-Public Use
  Company Number: 163-21880-12110967

PATIENT
  Age: 77 Year
  Sex: Female
  Weight: 68.04 kg

DRUGS (20)
  1. REVLIMID(LENALIDOMIDE)(10 MILLIGRAM, CAPSULES) [Suspect]
     Indication: MYELODYSPLASTIC SYNDROME
     Dosage: 10 MG, 28 IN 28 D, PO
     Route: 048
     Dates: start: 20120822, end: 2013
  2. ALBUTEROL (SALBUTAMOL) [Concomitant]
  3. ASPIRIN BUFFERED (ACETYLSALICYLIC ACID) (ENTERIC-COATED TABLET) [Concomitant]
  4. CALCIUM CITRATE (CALCIUM CITRATE) [Concomitant]
  5. FISH OIL (FISH OIL) (CAPSULES) [Concomitant]
  6. GARLIC OIL (ALLIUM SATIVUM OIL) (CAPSULES) [Concomitant]
  7. GLUCOSAMINE CHONDROITIN (GLUCOSAMINE W/CHONDROITIN SULFATE) [Concomitant]
  8. MULTIVITAMINS (MULTIVITAMINS) (CAPSULES) [Concomitant]
  9. SIMVASTATIN (SIMVASTATIN) (TABLETS) [Concomitant]
  10. SUPER B COMPLEX (VITAMIN-B-KOMPLEX STANDARD) (CAPSULES) [Concomitant]
  11. SYMBICORT (SYMBICORT TURBUHALER ^DRACO^) [Concomitant]
  12. ST. JOHN^S WORT (HYPERICUM PERFORATUM) [Concomitant]
  13. FLAXSEED OIL (LINSEED OIL) [Concomitant]
  14. LISINOPRIL (LISINOPRIL) [Concomitant]
  15. MELATONIN (MELATONIN) (CAPSULES) [Concomitant]
  16. ANTIBIOTICS (ANTIBIOTICS) [Concomitant]
  17. METOPROLOL SUCCINATE (METOPROLOL SUCCINATE) [Concomitant]
  18. SYSTANE (RHINARIS) (LIQUID) [Concomitant]
  19. PRENATAL (PRENATAL) [Concomitant]
  20. IMODIUM AD (LOPERAMIDE HYDROCHLORIDE) [Concomitant]

REACTIONS (7)
  - Myocardial infarction [None]
  - Deep vein thrombosis [None]
  - Neutropenia [None]
  - Dyspnoea [None]
  - Platelet count decreased [None]
  - Nasopharyngitis [None]
  - White blood cell count decreased [None]
